FAERS Safety Report 10545417 (Version 1)
Quarter: 2014Q4

REPORT INFORMATION
  Report Type: Spontaneous
  Country: US (occurrence: US)
  Receive Date: 20141027
  Receipt Date: 20141027
  Transmission Date: 20150529
  Serious: No
  Sender: FDA-Public Use
  Company Number: US-PFIZER INC-2014290303

PATIENT
  Age: 51 Year
  Weight: 63.49 kg

DRUGS (23)
  1. GABAPENTIN. [Suspect]
     Active Substance: GABAPENTIN
     Indication: HYPERKERATOSIS
  2. LORAZEPAM. [Concomitant]
     Active Substance: LORAZEPAM
     Dosage: 0.5 MG, AS NEEDED (0.5 MG SIG; ONE CAP/TAB DAILY PRN)
  3. CALTRATE 600+D [Concomitant]
     Dosage: 1 DF ([CALCIUM CARBONATE 600MG]/[COLECALCIFEROL 400MG]), 2X/DAY
  4. MILK THISTLE [Concomitant]
     Active Substance: MILK THISTLE
     Dosage: 500 MG, 3X/DAY
  5. HUMALOG [Concomitant]
     Active Substance: INSULIN LISPRO
     Dosage: 10 DF, 3X/DAY (SOLN 100 UNLT/ML SIG^ 10 UNITS BEFORE MEALS 3 TIMES DAILY)
  6. OXYCODONE/PARACETAMOL [Concomitant]
     Dosage: 1 DF ([OXYCODONE 10MG]/[ACETAMINOPHEN 325MG]), 4X/DAY (Q6 HOURS)
  7. OMEPRAZOLE. [Concomitant]
     Active Substance: OMEPRAZOLE
     Dosage: 20 MG, 2X/DAY
  8. LEVEMIR [Concomitant]
     Active Substance: INSULIN DETEMIR
     Dosage: SOLN 100 UNIT/ML SIG: 16 UNITS AT BEDTIME
  9. SPIRONOLACTONE. [Concomitant]
     Active Substance: SPIRONOLACTONE
     Dosage: 50 MG, 1X/DAY
  10. LACTULOSE. [Concomitant]
     Active Substance: LACTULOSE
     Dosage: 3 DF, 3X/DAY (SOLN 10 GM/ 15ML SIG: 3TBSP TID)
  11. FUROSEMIDE. [Concomitant]
     Active Substance: FUROSEMIDE
     Dosage: 40 MG, 2X/DAY
  12. IRON [Concomitant]
     Active Substance: IRON
     Dosage: 325 MG, 2X/DAY
  13. BACTROBAN [Concomitant]
     Active Substance: MUPIROCIN\MUPIROCIN CALCIUM
     Dosage: 2 %, DAILY
  14. XIFAXAN [Concomitant]
     Active Substance: RIFAXIMIN
     Dosage: 550 MG, 2X/DAY
  15. TEMAZEPAM. [Concomitant]
     Active Substance: TEMAZEPAM
     Dosage: 15 MG, 1X/DAY
  16. GABAPENTIN. [Suspect]
     Active Substance: GABAPENTIN
     Indication: HYPOAESTHESIA
     Dosage: UNK
  17. DIPROLENE [Concomitant]
     Active Substance: BETAMETHASONE DIPROPIONATE
     Dosage: 0.05 %, 1X/DAY
  18. NORCO [Concomitant]
     Active Substance: ACETAMINOPHEN\HYDROCODONE BITARTRATE
     Dosage: 1 DF ([HYDROCODONE BITARTRATE 5MG]/[PARACETAMOL 325MG]), 4X/DAY (1 Q6 HOURS)
  19. LISINOPRIL. [Concomitant]
     Active Substance: LISINOPRIL
     Dosage: 10 MG, 1X/DAY
  20. CENTRUM SILVER [Concomitant]
     Active Substance: VITAMINS
     Dosage: UNK
  21. NEURONTIN [Concomitant]
     Active Substance: GABAPENTIN
     Dosage: 100 MG, 2X/DAY
  22. PROPRANOLOL [Concomitant]
     Active Substance: PROPRANOLOL\PROPRANOLOL HYDROCHLORIDE
     Dosage: 10 MG, ALTERNATE DAY
  23. MAGNESIUM OXIDE. [Concomitant]
     Active Substance: MAGNESIUM OXIDE
     Dosage: 800 MG, 4X/DAY

REACTIONS (1)
  - Drug ineffective for unapproved indication [Unknown]
